FAERS Safety Report 8535867-9 (Version None)
Quarter: 2012Q3

REPORT INFORMATION
  Report Type: 
  Country: None (occurrence: None)
  Receive Date: 20120725
  Receipt Date: 20120717
  Transmission Date: 20120928
  Serious: Yes (Life-Threatening)
  Sender: FDA-Public Use
  Company Number: PHHY2012DE038993

PATIENT
  Sex: Male
  Weight: 58 kg

DRUGS (5)
  1. TOBI [Suspect]
     Indication: PSEUDOMONAS INFECTION
     Dosage: 112 MG, BID
     Dates: start: 20111201, end: 20111214
  2. AZITHROMYCIN [Concomitant]
     Indication: PSEUDOMONAS INFECTION
     Dosage: 1 DF
     Route: 048
  3. ALBUTEROL SULFATE [Concomitant]
     Indication: OBSTRUCTIVE AIRWAYS DISORDER
     Dosage: 1 DF, PRN
  4. SPIRIVA [Concomitant]
     Indication: OBSTRUCTIVE AIRWAYS DISORDER
     Dosage: 1 DF, QD
  5. SYMBICORT [Concomitant]
     Indication: OBSTRUCTIVE AIRWAYS DISORDER
     Dosage: 1 DF, UNK

REACTIONS (4)
  - BRONCHIAL DISORDER [None]
  - COUGH [None]
  - EPISTAXIS [None]
  - POST PROCEDURAL COMPLICATION [None]
